FAERS Safety Report 16845084 (Version 2)
Quarter: 2019Q4

REPORT INFORMATION
  Report Type: Report from Study
  Country: US (occurrence: US)
  Receive Date: 20190924
  Receipt Date: 20191101
  Transmission Date: 20200122
  Serious: Yes (Hospitalization)
  Sender: FDA-Public Use
  Company Number: US-ROCHE-2407977

PATIENT
  Age: 71 Year
  Sex: Female
  Weight: 54.48 kg

DRUGS (4)
  1. ACTEMRA [Interacting]
     Active Substance: TOCILIZUMAB
     Route: 058
  2. ACTEMRA [Suspect]
     Active Substance: TOCILIZUMAB
     Indication: TEMPORAL ARTERITIS
     Route: 058
     Dates: start: 20190501
  3. ACTEMRA [Interacting]
     Active Substance: TOCILIZUMAB
     Route: 058
     Dates: start: 20190701
  4. PREDNISONE. [Interacting]
     Active Substance: PREDNISONE
     Indication: TEMPORAL ARTERITIS
     Dosage: EVERY MORNING
     Route: 065

REACTIONS (5)
  - Asthenia [Recovered/Resolved]
  - Bacterial infection [Unknown]
  - Drug interaction [Unknown]
  - Urinary tract infection [Recovered/Resolved]
  - Pneumonia [Recovered/Resolved]

NARRATIVE: CASE EVENT DATE: 20190705
